FAERS Safety Report 5583069-0 (Version None)
Quarter: 2008Q1

REPORT INFORMATION
  Report Type: 
  Country: None (occurrence: None)
  Receive Date: 20080107
  Receipt Date: 20080104
  Transmission Date: 20080703
  Serious: Yes (Hospitalization)
  Sender: FDA-Public Use
  Company Number: B0501430A

PATIENT
  Age: 58 Year
  Sex: Male

DRUGS (5)
  1. PAROXETINE HCL [Suspect]
     Indication: ANXIETY
     Dosage: 20MG IN THE MORNING
     Route: 065
     Dates: start: 20071121
  2. METOPROLOL [Concomitant]
     Dosage: 50MG TWICE PER DAY
  3. SIMVASTATIN [Concomitant]
     Dosage: 20MG AT NIGHT
     Dates: start: 20060116
  4. BENDROFLUMETHIAZIDE [Concomitant]
     Dosage: 2.5MG PER DAY
     Dates: start: 20020105
  5. LISINOPRIL [Concomitant]
     Dosage: 20MG PER DAY
     Dates: start: 20020105

REACTIONS (7)
  - ABNORMAL BEHAVIOUR [None]
  - CONSTIPATION [None]
  - DIZZINESS [None]
  - MEMORY IMPAIRMENT [None]
  - NAUSEA [None]
  - PARANOIA [None]
  - PERSONALITY CHANGE [None]
